FAERS Safety Report 9512187 (Version 1)
Quarter: 2013Q1

REPORT INFORMATION
  Report Type: Spontaneous
  Country: US (occurrence: None)
  Receive Date: 20130305
  Receipt Date: 20130305
  Transmission Date: 20140127
  Serious: Yes (Other)
  Sender: FDA-Public Use
  Company Number: 163-21880-11123816

PATIENT
  Age: 71 Year
  Sex: Male

DRUGS (20)
  1. REVLIMID (LENALIDOMIDE) (25 MILLIGRAM, CAPSULES) [Suspect]
     Indication: PLASMA CELL MYELOMA
     Dosage: QD X 21D OFF 7
     Route: 048
     Dates: start: 20111215, end: 20111228
  2. XANAX (ALPRAZOLAM) (TABLETS) [Concomitant]
  3. REFRESH P.M. (TEARS PLUS) (OINTMENT) [Concomitant]
  4. REFRESH TEAR (CARMELOSE SODIUM) (DROPS) [Concomitant]
  5. SYNTHROID (LEVOTHYROXINE SODIUM) (TABLETS) [Concomitant]
  6. HYDROCHLOROT (HYDROCHLOROTHIAZIDE) (CAPSULES) [Concomitant]
  7. FLONASE (FLUTICASONE PROPIONATE) (SPRAY (NOT INHALATION)) [Concomitant]
  8. SUDAFED (PSEUDOEPHEDRINE HYDROCHLORIDE) (TABLETS) [Concomitant]
  9. TUMS (CALCIUM CARBONATE) (CHEWABLE TABLET) [Concomitant]
  10. ZOLPIDEM (ZOLPIDEM) (TABLETS) [Concomitant]
  11. MUKTIMAX (ALL OTHER THERAPEUTIC PRODUCTS) (TABLETS) [Concomitant]
  12. CITALOPRAM (CITALOPRAM) (TABLETS) [Concomitant]
  13. ASA (ACETYLSALICYLIC ACID) (TABLETS) [Concomitant]
  14. ZITHROMAZ (AZITHROMYCIN) (TABLETS [Concomitant]
  15. HYDROCO/APAP (HYDROCODONE) (TABLETS) [Concomitant]
  16. DEXAMETHASONE (DEXAMETHASONE) (TABLETS) [Concomitant]
  17. DIOVAN (VALSARTAN) (TABLETS) [Concomitant]
  18. ACYCLOVIR (ACICLOVIR) (400 MILLIGRAM, PILL) [Concomitant]
  19. LORTAB (VICODIN) (UNKNOWN) [Concomitant]
  20. LEVOTHYROXINE (LEVOTHYROXINE (UNKNOWN) [Concomitant]

REACTIONS (4)
  - Rash macular [None]
  - Oral herpes [None]
  - Oral pain [None]
  - Pruritus [None]
